FAERS Safety Report 9656764 (Version 1)
Quarter: 2013Q4

REPORT INFORMATION
  Report Type: Spontaneous
  Country: SE (occurrence: None)
  Receive Date: 20131015
  Receipt Date: 20131015
  Transmission Date: 20140711
  Serious: Yes (Life-Threatening)
  Sender: FDA-Public Use
  Company Number: 2013035716

PATIENT
  Age: 85 Year
  Sex: Female

DRUGS (16)
  1. CONFIDEX [Suspect]
     Indication: PROTHROMBIN TIME PROLONGED
     Route: 042
     Dates: start: 20130218, end: 20130218
  2. TAZOCIN (PIP/TAZO) [Suspect]
     Dosage: NI,NI,NI
     Dates: start: 20130218, end: 20130218
  3. INSULATARD /00646001/(INSULIN HUMAN) [Concomitant]
  4. NORSPAN(BUPRENORPHINE) [Concomitant]
  5. SIMVASTATIN(SIMVASTATIN) [Suspect]
  6. LOSARTAN(LOSARTAN) [Concomitant]
  7. BUDESONIDE(BUDESONIDE) [Concomitant]
  8. AMLODIPINE(AMLODIPINE) * [Concomitant]
  9. WARAN(WARFARIN SODIUM) [Concomitant]
  10. BEHEPAN(CYANOCOBALAMIN) [Concomitant]
  11. LAXOBERAL(SODIUM PICOSULFATE) [Concomitant]
  12. MINDIAB(GLIPIZIDE) [Concomitant]
  13. SELOKEN/00376902/(METOPROLOL TARTRATE) [Concomitant]
  14. LAKTULOS(LACTULOSE) [Concomitant]
  15. SPIRONOLAKTON(SPIRONOLACTONE) [Concomitant]
  16. IDEOS(LEKOVIT CA) [Concomitant]

REACTIONS (10)
  - Transfusion-related acute lung injury [None]
  - Anaphylactic shock [None]
  - Pulmonary oedema [None]
  - Respiratory tract inflammation [None]
  - Unresponsive to stimuli [None]
  - Obstructive airways disorder [None]
  - Pulse absent [None]
  - Blood pressure systolic decreased [None]
  - Pain [None]
  - Loss of consciousness [None]
